FAERS Safety Report 9257773 (Version 1)
Quarter: 2013Q2

REPORT INFORMATION
  Report Type: Report from Study
  Country: US (occurrence: US)
  Receive Date: 20130426
  Receipt Date: 20130426
  Transmission Date: 20140414
  Serious: Yes (Hospitalization)
  Sender: FDA-Public Use
  Company Number: US-BAYER-2013-048663

PATIENT
  Age: 48 Year
  Sex: Female

DRUGS (1)
  1. STIVARGA [Suspect]
     Indication: COLON CANCER
     Dosage: 160 MG, QD
     Route: 048

REACTIONS (6)
  - Burning sensation [None]
  - Dyspnoea [None]
  - Haemorrhage [None]
  - Fatigue [None]
  - Decreased appetite [None]
  - Dysphonia [None]
